FAERS Safety Report 20405685 (Version 3)
Quarter: 2022Q2

REPORT INFORMATION
  Report Type: Spontaneous
  Country: CO (occurrence: CO)
  Receive Date: 20220131
  Receipt Date: 20220506
  Transmission Date: 20220721
  Serious: Yes (Life-Threatening, Hospitalization, Other)
  Sender: FDA-Public Use
  Company Number: CO-MLMSERVICE-20220114-3322216-1

PATIENT
  Age: 27 Year
  Sex: Female
  Weight: 70 kg

DRUGS (2)
  1. IBUPROFEN [Suspect]
     Active Substance: IBUPROFEN
     Indication: Stomatitis
     Dosage: UNK
     Route: 048
     Dates: start: 20190126, end: 2019
  2. DICLOFENAC [Suspect]
     Active Substance: DICLOFENAC
     Indication: Stomatitis
     Dosage: SINGLE DOSE
     Route: 030
     Dates: start: 20190126, end: 20190126

REACTIONS (1)
  - Toxic epidermal necrolysis [Recovered/Resolved]

NARRATIVE: CASE EVENT DATE: 20190128
